FAERS Safety Report 8210880-X (Version None)
Quarter: 2012Q1

REPORT INFORMATION
  Report Type: 
  Country: None (occurrence: None)
  Receive Date: 20120315
  Receipt Date: 20120306
  Transmission Date: 20120608
  Serious: Yes (Other)
  Sender: FDA-Public Use
  Company Number: US-BAYER-2011-096351

PATIENT
  Age: 29 Year
  Sex: Female
  Weight: 73.923 kg

DRUGS (2)
  1. YASMIN [Suspect]
     Dosage: UNK
     Dates: start: 20070701, end: 20080826
  2. YAZ [Suspect]
     Dosage: UNK
     Dates: start: 20060406, end: 20080826

REACTIONS (6)
  - PAIN [None]
  - EMOTIONAL DISTRESS [None]
  - DEEP VEIN THROMBOSIS [None]
  - ANXIETY [None]
  - INJURY [None]
  - GENERAL PHYSICAL HEALTH DETERIORATION [None]
